FAERS Safety Report 6870169-8 (Version None)
Quarter: 2010Q3

REPORT INFORMATION
  Report Type: 
  Country: None (occurrence: None)
  Receive Date: 20100721
  Receipt Date: 20100715
  Transmission Date: 20110219
  Serious: Yes (Hospitalization)
  Sender: FDA-Public Use
  Company Number: RB-10246-2010

PATIENT
  Age: 38 Year
  Sex: Female

DRUGS (1)
  1. SUBUTEX [Suspect]
     Indication: DRUG DEPENDENCE
     Dosage: (24 MG QD SUBLINGUAL)
     Route: 060
     Dates: start: 20080101

REACTIONS (3)
  - EPILEPSY [None]
  - GASTROENTERITIS VIRAL [None]
  - STRESS [None]
